FAERS Safety Report 7181044-6 (Version None)
Quarter: 2010Q4

REPORT INFORMATION
  Report Type: 
  Country: None (occurrence: None)
  Receive Date: 20101221
  Receipt Date: 20100415
  Transmission Date: 20110411
  Serious: No
  Sender: FDA-Public Use
  Company Number: US-AMGEN-TCS406563

PATIENT

DRUGS (2)
  1. ENBREL [Suspect]
     Indication: RHEUMATOID ARTHRITIS
     Dosage: 25 MG, 2 TIMES/WK
     Route: 058
     Dates: start: 20100408
  2. LEFLUNOMIDE [Concomitant]
     Dosage: 10 MG, QD
     Route: 048

REACTIONS (2)
  - INJECTION SITE SWELLING [None]
  - INJECTION SITE VESICLES [None]
